FAERS Safety Report 23900986 (Version 1)
Quarter: 2024Q2

REPORT INFORMATION
  Report Type: Spontaneous
  Country: US (occurrence: None)
  Receive Date: 20240526
  Receipt Date: 20240526
  Transmission Date: 20240716
  Serious: No
  Sender: FDA-Public Use
  Company Number: US-ROCHE-3494250

PATIENT
  Age: 64 Year
  Sex: Male
  Weight: 78.996 kg

DRUGS (9)
  1. OCREVUS [Suspect]
     Active Substance: OCRELIZUMAB
     Indication: Secondary progressive multiple sclerosis
     Dosage: MOST RECENT INFUSION DATE 18/AUG/2023, CONTINUES EVERY 6 MONTHS SINCE INITIAL DOSE
     Route: 042
     Dates: start: 20190709, end: 20230818
  2. TRAZODONE [Concomitant]
     Active Substance: TRAZODONE HYDROCHLORIDE
  3. ATORVASTATIN [Concomitant]
     Active Substance: ATORVASTATIN
     Indication: Hyperlipidaemia
     Route: 048
  4. GABAPENTIN [Concomitant]
     Active Substance: GABAPENTIN
  5. BACLOFEN [Concomitant]
     Active Substance: BACLOFEN
     Indication: Muscle spasticity
     Route: 048
  6. TYSABRI [Concomitant]
     Active Substance: NATALIZUMAB
     Dates: start: 2014, end: 2016
  7. TECFIDERA [Concomitant]
     Active Substance: DIMETHYL FUMARATE
     Dates: start: 2016, end: 2019
  8. DULOXETINE [Concomitant]
     Active Substance: DULOXETINE
  9. METFORMIN [Concomitant]
     Active Substance: METFORMIN HYDROCHLORIDE

REACTIONS (3)
  - Eosinophilia [Not Recovered/Not Resolved]
  - Full blood count abnormal [Unknown]
  - Leukocytosis [Unknown]
